FAERS Safety Report 22223649 (Version 1)
Quarter: 2023Q2

REPORT INFORMATION
  Report Type: Spontaneous
  Country: US (occurrence: None)
  Receive Date: 20230417
  Receipt Date: 20230417
  Transmission Date: 20230722
  Serious: No
  Sender: FDA-Public Use
  Company Number: None

PATIENT
  Age: 62 Year
  Sex: Female
  Weight: 67.8 kg

DRUGS (1)
  1. CLOBETASOL [Suspect]
     Active Substance: CLOBETASOL
     Indication: Dermatitis
     Dosage: FREQUENCY : TWICE A DAY;?
     Route: 061
     Dates: start: 20230415, end: 20230415

REACTIONS (3)
  - Product administered at inappropriate site [None]
  - Pruritus genital [None]
  - Formication [None]

NARRATIVE: CASE EVENT DATE: 20230415
